FAERS Safety Report 5703720-1 (Version None)
Quarter: 2008Q2

REPORT INFORMATION
  Report Type: 
  Country: None (occurrence: None)
  Receive Date: 20080413
  Receipt Date: 20080331
  Transmission Date: 20081010
  Serious: Yes (Hospitalization)
  Sender: FDA-Public Use
  Company Number: PHEH2008US03280

PATIENT
  Age: 82 Year
  Sex: Female
  Weight: 77.097 kg

DRUGS (11)
  1. RECLAST [Suspect]
     Indication: OSTEOPOROSIS
     Dosage: 5 MG, UNK
  2. PLAVIX [Concomitant]
  3. ASPIRIN [Concomitant]
     Dosage: UNK, QD
  4. CRESTOR [Concomitant]
  5. LABETALOL HCL [Concomitant]
  6. PROCARDIA [Concomitant]
  7. ELAVIL [Concomitant]
  8. ANTIVERT [Concomitant]
  9. NEXIUM [Concomitant]
  10. CALCIUM [Concomitant]
  11. VITAREL [Concomitant]

REACTIONS (3)
  - CEREBROVASCULAR DISORDER [None]
  - HYPOAESTHESIA [None]
  - MUSCULAR WEAKNESS [None]
